FAERS Safety Report 9884626 (Version 1)
Quarter: 2014Q1

REPORT INFORMATION
  Report Type: Spontaneous
  Country: US (occurrence: None)
  Receive Date: 20140207
  Receipt Date: 20140207
  Transmission Date: 20141002
  Serious: Yes (Death)
  Sender: FDA-Public Use
  Company Number: None

PATIENT
  Age: 63 Year
  Sex: Male
  Weight: 104 kg

DRUGS (11)
  1. APIXABAN [Suspect]
     Indication: ATRIAL FIBRILLATION
     Route: 048
  2. ACCUPRIL [Concomitant]
  3. GLUCOPHAGE XR [Concomitant]
  4. LORTAB [Concomitant]
  5. LORAZEPAM [Concomitant]
  6. LIPITOR [Concomitant]
  7. LYRICA [Concomitant]
  8. SKELAXIN [Concomitant]
  9. ATENOLOL [Concomitant]
  10. CARDIZEM CD [Concomitant]
  11. HCTZ [Concomitant]

REACTIONS (3)
  - Unresponsive to stimuli [None]
  - Fall [None]
  - Cerebral haemorrhage [None]
